FAERS Safety Report 7680602-X (Version None)
Quarter: 2011Q3

REPORT INFORMATION
  Report Type: 
  Country: None (occurrence: None)
  Receive Date: 20110811
  Receipt Date: 20110811
  Transmission Date: 20111222
  Serious: No
  Sender: FDA-Public Use
  Company Number: None

PATIENT
  Age: 70 Year
  Sex: Female

DRUGS (10)
  1. OMEPRAZOLE [Concomitant]
  2. HYDROCHLOROTHIAZIDE [Concomitant]
  3. LEXAPRO [Concomitant]
  4. SIMAVASTATIN [Concomitant]
  5. REVLIMID [Suspect]
     Indication: MULTIPLE MYELOMA
     Dosage: REVLIMID 25MG ORALLY
     Route: 048
     Dates: start: 20110701
  6. FLUTICASONE NASAL SPRAY [Concomitant]
  7. DEXAMETHASONE [Concomitant]
  8. LISINOPRIL [Concomitant]
  9. WARFARIN SODIUM [Concomitant]
  10. LEVOTHYROXINE SODIUM [Concomitant]

REACTIONS (4)
  - DEEP VEIN THROMBOSIS [None]
  - FATIGUE [None]
  - MYALGIA [None]
  - ASTHENIA [None]
